FAERS Safety Report 8876993 (Version 1)
Quarter: 2012Q4

REPORT INFORMATION
  Report Type: 
  Country: GB (occurrence: GB)
  Receive Date: 20121030
  Receipt Date: 20121030
  Transmission Date: 20130627
  Serious: Yes (Life-Threatening)
  Sender: FDA-Public Use
  Company Number: GB-MYLANLABS-2012S1021728

PATIENT
  Age: 89 Year
  Sex: Male

DRUGS (5)
  1. RISPERIDONE [Suspect]
     Indication: PRODUCT USED FOR UNKNOWN INDICATION
     Route: 048
     Dates: start: 20120906, end: 20120907
  2. DONEPEZIL [Concomitant]
     Indication: DEMENTIA ALZHEIMER^S TYPE
     Route: 048
     Dates: start: 201208, end: 20120920
  3. LORAZEPAM [Concomitant]
     Indication: AGITATION
     Route: 048
  4. MESALAZINE [Concomitant]
     Indication: COLITIS ULCERATIVE
     Route: 048
  5. ZOPICLONE [Concomitant]
     Indication: INSOMNIA
     Route: 048
     Dates: start: 20120906

REACTIONS (3)
  - Electrocardiogram QT prolonged [Recovered/Resolved]
  - Coma scale abnormal [Recovered/Resolved]
  - Unresponsive to stimuli [Recovered/Resolved]
